FAERS Safety Report 4951174-5 (Version None)
Quarter: 2006Q1

REPORT INFORMATION
  Report Type: 
  Country: None (occurrence: None)
  Receive Date: 20060130
  Receipt Date: 20050311
  Transmission Date: 20060701
  Serious: Yes (Other)
  Sender: FDA-Public Use
  Company Number: 141582USA

PATIENT
  Age: 44 Year
  Sex: Female

DRUGS (2)
  1. COPAXONE [Suspect]
     Indication: MULTIPLE SCLEROSIS
     Dates: start: 20021201, end: 20030513
  2. LEXAPRO [Suspect]
     Dates: end: 20030513

REACTIONS (3)
  - HEPATOCELLULAR DAMAGE [None]
  - JAUNDICE [None]
  - LIVER FUNCTION TEST ABNORMAL [None]
